FAERS Safety Report 8484936-0 (Version None)
Quarter: 2012Q3

REPORT INFORMATION
  Report Type: 
  Country: None (occurrence: None)
  Receive Date: 20120703
  Receipt Date: 20120625
  Transmission Date: 20120928
  Serious: Yes (Hospitalization, Other)
  Sender: FDA-Public Use
  Company Number: JP-ASTELLAS-2012US005868

PATIENT
  Sex: Male

DRUGS (15)
  1. GEMCITABINE HYDROCHLORIDE [Suspect]
     Indication: ADENOCARCINOMA PANCREAS
     Dosage: 1000 MG/M2, UNKNOWN/D
     Route: 041
     Dates: start: 20120220, end: 20120220
  2. GEMCITABINE HYDROCHLORIDE [Suspect]
     Dosage: 1000 MG/M2, UNKNOWN/D
     Route: 041
     Dates: start: 20120305, end: 20120305
  3. OXYCONTIN [Suspect]
     Dosage: 20 MG, UNKNOWN/D
     Route: 048
     Dates: start: 20120405
  4. OXINORM                            /00045603/ [Concomitant]
     Dosage: 5 MG, UNKNOWN/D
     Route: 048
     Dates: start: 20120304
  5. GEMCITABINE HYDROCHLORIDE [Suspect]
     Dosage: 1000 MG/M2, UNKNOWN/D
     Route: 041
     Dates: start: 20120319, end: 20120319
  6. GEMCITABINE HYDROCHLORIDE [Suspect]
     Dosage: 1000 MG/M2, UNKNOWN/D
     Route: 041
     Dates: start: 20120402, end: 20120402
  7. ERLOTINIB HYDROCHLORIDE [Suspect]
     Indication: ADENOCARCINOMA PANCREAS
     Dosage: 100 MG, UID/QD
     Route: 048
     Dates: start: 20120220, end: 20120416
  8. GEMCITABINE HYDROCHLORIDE [Suspect]
     Dosage: 1000 MG/M2, UNKNOWN/D
     Route: 041
     Dates: start: 20120227, end: 20120227
  9. OXYCONTIN [Suspect]
     Indication: ADENOCARCINOMA PANCREAS
     Dosage: 10 MG, UNKNOWN/D
     Route: 048
     Dates: end: 20120304
  10. LANSOPRAZOLE [Concomitant]
     Indication: PROPHYLAXIS
     Dosage: 15 MG, UNKNOWN/D
     Route: 048
  11. GEMCITABINE HYDROCHLORIDE [Suspect]
     Dosage: 1000 MG/M2, UNKNOWN/D
     Route: 041
     Dates: start: 20120326, end: 20120326
  12. LOXOPROFEN                         /00890702/ [Concomitant]
     Indication: ADENOCARCINOMA PANCREAS
     Dosage: 180 MG, UNKNOWN/D
     Route: 048
  13. GRANISETRON HYDROCHLORIDE [Concomitant]
     Indication: PROPHYLAXIS
     Dosage: 1 MG, UNKNOWN/D
     Route: 042
  14. DEXAMETHASONE SODIUM PHOSPHATE [Concomitant]
     Indication: PROPHYLAXIS
     Dosage: 6.6 MG, UNKNOWN/D
     Route: 042
  15. OXINORM                            /00045603/ [Concomitant]
     Indication: ADENOCARCINOMA PANCREAS
     Dosage: 2.5 MG, UNKNOWN/D
     Route: 048
     Dates: start: 20120304

REACTIONS (13)
  - HEPATIC FUNCTION ABNORMAL [None]
  - BLOOD ALKALINE PHOSPHATASE INCREASED [None]
  - NEOPLASM MALIGNANT [None]
  - FATIGUE [None]
  - HYPOALBUMINAEMIA [None]
  - DIARRHOEA [None]
  - RASH [None]
  - BLOOD BILIRUBIN INCREASED [None]
  - DECREASED APPETITE [None]
  - PYREXIA [None]
  - CONSTIPATION [None]
  - NAUSEA [None]
  - HYPERGLYCAEMIA [None]
